FAERS Safety Report 5524626-7 (Version None)
Quarter: 2007Q4

REPORT INFORMATION
  Report Type: 
  Country: None (occurrence: None)
  Receive Date: 20071123
  Receipt Date: 20071114
  Transmission Date: 20080405
  Serious: Yes (Hospitalization)
  Sender: FDA-Public Use
  Company Number: PR-SHR-PR-2007-043477

PATIENT
  Age: 77 Year
  Sex: Female

DRUGS (8)
  1. LEUKINE [Suspect]
     Indication: LYMPHOMA
     Dosage: 250MCG, 3 DOSES
     Route: 058
     Dates: start: 20071107, end: 20071112
  2. SYNTHROID [Concomitant]
     Dosage: 200 MCG DAILY
     Route: 048
     Dates: start: 20070917
  3. SYNTHROID [Concomitant]
     Dosage: 175 MCG DAILY
     Route: 048
     Dates: start: 20071113
  4. RITUXIMAB [Suspect]
     Indication: LYMPHOMA
     Dosage: 375MG/M2 DAY 1
     Route: 042
     Dates: start: 20071105, end: 20071105
  5. CYCLOPHOSPHAMIDE [Suspect]
     Indication: LYMPHOMA
     Dosage: 750MG/M2 DAY 2
     Route: 042
     Dates: start: 20071106, end: 20071106
  6. DOXORUBICIN HCL [Suspect]
     Indication: LYMPHOMA
     Dosage: 50MG/M2 DAY 2
     Route: 042
     Dates: start: 20071106, end: 20071106
  7. VINCRISTINE [Suspect]
     Indication: LYMPHOMA
     Dosage: 1.4 MG/M2 DAY 2
     Route: 042
     Dates: start: 20071106, end: 20071106
  8. NEULASTA [Suspect]
     Indication: COLONY STIMULATING FACTOR THERAPY
     Dosage: 3 MG/M2
     Route: 058
     Dates: start: 20071107, end: 20071107

REACTIONS (4)
  - ATRIAL FIBRILLATION [None]
  - EMBOLISM [None]
  - HYPERTHYROIDISM [None]
  - NEUTROPENIA [None]
